FAERS Safety Report 9443899 (Version 1)
Quarter: 2013Q3

REPORT INFORMATION
  Report Type: Spontaneous
  Country: US (occurrence: US)
  Receive Date: 20130807
  Receipt Date: 20130807
  Transmission Date: 20140515
  Serious: Yes (Death, Other)
  Sender: FDA-Public Use
  Company Number: US-JNJFOC-20130800666

PATIENT
  Age: 5 Year
  Sex: Male
  Weight: 29 kg

DRUGS (3)
  1. CODEINE [Suspect]
     Indication: PROCEDURAL PAIN
     Route: 065
  2. ACETAMINOPHEN [Suspect]
     Route: 065
  3. ACETAMINOPHEN [Suspect]
     Indication: PROCEDURAL PAIN
     Route: 065

REACTIONS (2)
  - Death [Fatal]
  - Toxicity to various agents [Fatal]
